FAERS Safety Report 5630611-7 (Version None)
Quarter: 2008Q1

REPORT INFORMATION
  Report Type: 
  Country: None (occurrence: None)
  Receive Date: 20080219
  Receipt Date: 20080219
  Transmission Date: 20080703
  Serious: Yes (Death)
  Sender: FDA-Public Use
  Company Number: None

PATIENT
  Age: 80 Year
  Sex: Male
  Weight: 68.7 kg

DRUGS (2)
  1. HEPARIN [Suspect]
     Indication: CATHETERISATION CARDIAC
     Dosage: 2000UNITS ONCE IV
     Route: 042
     Dates: start: 20080109, end: 20080109
  2. HEPARIN [Suspect]
     Indication: INTRAVENOUS CATHETER MANAGEMENT
     Dosage: 2000UNITS ONCE IV
     Route: 042
     Dates: start: 20080109, end: 20080109

REACTIONS (6)
  - BRADYCARDIA [None]
  - HYPOTENSION [None]
  - PHARMACEUTICAL PRODUCT COMPLAINT [None]
  - POST PROCEDURAL COMPLICATION [None]
  - UNRESPONSIVE TO STIMULI [None]
  - VOMITING [None]
